FAERS Safety Report 5117667-5 (Version None)
Quarter: 2006Q3

REPORT INFORMATION
  Report Type: 
  Country: None (occurrence: None)
  Receive Date: 20060926
  Receipt Date: 20060913
  Transmission Date: 20061208
  Serious: Yes (Death, Other)
  Sender: FDA-Public Use
  Company Number: 2006US002030

PATIENT
  Age: 27 Year
  Sex: Female

DRUGS (3)
  1. PROGRAF [Suspect]
     Indication: PROPHYLAXIS AGAINST TRANSPLANT REJECTION
  2. MYCOPHENOLATE MOFETIL (MYCOPHENOLA MOFETIL) [Concomitant]
  3. PREDNISOLONE ACETATE [Concomitant]

REACTIONS (4)
  - GRAFT VERSUS HOST DISEASE [None]
  - KIDNEY TRANSPLANT REJECTION [None]
  - LEUKOPENIA [None]
  - MULTI-ORGAN FAILURE [None]
